FAERS Safety Report 4834397-5 (Version None)
Quarter: 2005Q4

REPORT INFORMATION
  Report Type: 
  Country: None (occurrence: None)
  Receive Date: 20051114
  Receipt Date: 20051029
  Transmission Date: 20060501
  Serious: Yes (Other)
  Sender: FDA-Public Use
  Company Number: 2005108023

PATIENT
  Sex: Female

DRUGS (4)
  1. BEXTRA [Suspect]
     Indication: ARTHRITIS
     Dosage: 10 MG (10 MG, 1 IN 1 D), ORAL
     Route: 048
     Dates: start: 20020801
  2. ZOCOR [Concomitant]
  3. NORVASC [Concomitant]
  4. LOPRESSOR [Concomitant]

REACTIONS (2)
  - BASAL CELL CARCINOMA [None]
  - IMPAIRED HEALING [None]
